FAERS Safety Report 9347888 (Version 1)
Quarter: 2013Q2

REPORT INFORMATION
  Report Type: Spontaneous
  Country: FR (occurrence: FR)
  Receive Date: 20130614
  Receipt Date: 20130614
  Transmission Date: 20140414
  Serious: Yes (Disabling)
  Sender: FDA-Public Use
  Company Number: FR-ASTRAZENECA-2013SE41939

PATIENT
  Age: 49 Year
  Sex: Female

DRUGS (4)
  1. XEROQUEL [Suspect]
     Indication: DEPRESSION
     Route: 048
     Dates: start: 201209, end: 201306
  2. EFFEXOR [Concomitant]
  3. XANAX [Concomitant]
  4. STILNOX [Concomitant]

REACTIONS (1)
  - Visual acuity reduced [Not Recovered/Not Resolved]
